FAERS Safety Report 15774453 (Version 3)
Quarter: 2019Q3

REPORT INFORMATION
  Report Type: Report from Study
  Country: US (occurrence: US)
  Receive Date: 20181229
  Receipt Date: 20190710
  Transmission Date: 20191004
  Serious: Yes (Other)
  Sender: FDA-Public Use
  Company Number: PHEH2018US055258

PATIENT
  Age: 51 Year
  Sex: Female

DRUGS (1)
  1. GILENYA [Suspect]
     Active Substance: FINGOLIMOD HYDROCHLORIDE
     Indication: MULTIPLE SCLEROSIS
     Dosage: 0.5 MG, QD
     Route: 048
     Dates: start: 20180814

REACTIONS (10)
  - White blood cell count decreased [Not Recovered/Not Resolved]
  - Paraesthesia [Unknown]
  - Decreased appetite [Unknown]
  - Diarrhoea [Unknown]
  - Weight increased [Not Recovered/Not Resolved]
  - Nasopharyngitis [Unknown]
  - Hypertension [Unknown]
  - Pain [Unknown]
  - Depression [Unknown]
  - Fluid retention [Unknown]

NARRATIVE: CASE EVENT DATE: 20180814
